FAERS Safety Report 8951230 (Version 1)
Quarter: 2012Q4

REPORT INFORMATION
  Report Type: 
  Country: BR (occurrence: BR)
  Receive Date: 20121207
  Receipt Date: 20121207
  Transmission Date: 20130627
  Serious: Yes (Other)
  Sender: FDA-Public Use
  Company Number: PHHY2012BR110129

PATIENT
  Sex: Female

DRUGS (8)
  1. DIOVAN AMLO FIX [Suspect]
     Indication: HYPERTENSION
     Dosage: 1 DF, QD ( 320 mg vals and 5 mg amlo, in the morning)
     Dates: start: 2010
  2. NATRILIX [Suspect]
     Indication: HYPERTENSION
     Dosage: 1 DF, QD, (in the morning)
     Dates: start: 2010
  3. PANTELMIN [Suspect]
  4. REVECTINA [Suspect]
  5. ANNITA [Suspect]
  6. VITAMIN B COMPLEX [Suspect]
  7. CEWIN [Suspect]
  8. ADEFORTE [Suspect]

REACTIONS (5)
  - Glossodynia [Not Recovered/Not Resolved]
  - Throat irritation [Not Recovered/Not Resolved]
  - Speech disorder [Not Recovered/Not Resolved]
  - Oesophageal irritation [Not Recovered/Not Resolved]
  - Pain [Not Recovered/Not Resolved]
